FAERS Safety Report 25630126 (Version 1)
Quarter: 2025Q3

REPORT INFORMATION
  Report Type: Report from Study
  Country: US (occurrence: US)
  Receive Date: 20250801
  Receipt Date: 20250801
  Transmission Date: 20251020
  Serious: No
  Sender: SUNOVION
  Company Number: US-SUMITOMO PHARMA SWITZERLAND GMBH-2025SPA009612

PATIENT

DRUGS (13)
  1. ORGOVYX [Suspect]
     Active Substance: RELUGOLIX
     Indication: Prostate cancer
     Route: 048
     Dates: start: 20250621
  2. ORGOVYX [Suspect]
     Active Substance: RELUGOLIX
     Route: 048
     Dates: start: 20250622
  3. AMLODIPINE BESYLATE [Concomitant]
     Active Substance: AMLODIPINE BESYLATE
     Route: 065
  4. ATORVASTATIN [Concomitant]
     Active Substance: ATORVASTATIN
     Route: 065
  5. CARBIDOPA AND LEVODOPA [Concomitant]
     Active Substance: CARBIDOPA\LEVODOPA
     Route: 065
  6. COLACE [Concomitant]
     Active Substance: DOCUSATE SODIUM
     Route: 065
  7. METOPROLOL SUCCINATE [Concomitant]
     Active Substance: METOPROLOL SUCCINATE
     Route: 065
  8. MIRTAZAPINE [Concomitant]
     Active Substance: MIRTAZAPINE
     Route: 065
  9. VITAMINS [Concomitant]
     Active Substance: VITAMINS
     Route: 065
  10. TOPROL XL [Concomitant]
     Active Substance: METOPROLOL SUCCINATE
     Route: 065
  11. RASAGILINE MESYLATE [Concomitant]
     Active Substance: RASAGILINE MESYLATE
     Route: 065
  12. MIRALAX [Concomitant]
     Active Substance: POLYETHYLENE GLYCOL 3350
     Route: 065
  13. GAS RELIEF [Concomitant]
     Active Substance: DIMETHICONE
     Route: 065

REACTIONS (2)
  - Micturition urgency [Unknown]
  - Fatigue [Unknown]
